FAERS Safety Report 4953601-6 (Version None)
Quarter: 2006Q1

REPORT INFORMATION
  Report Type: 
  Country: None (occurrence: None)
  Receive Date: 20060324
  Receipt Date: 20060215
  Transmission Date: 20060701
  Serious: Yes (Death)
  Sender: FDA-Public Use
  Company Number: US-MERCK-0602USA04459

PATIENT
  Age: 71 Year
  Sex: Female
  Weight: 68 kg

DRUGS (1)
  1. VIOXX [Suspect]
     Route: 048
     Dates: start: 20000113, end: 20000127

REACTIONS (1)
  - CEREBROVASCULAR ACCIDENT [None]
